FAERS Safety Report 7618256-0 (Version None)
Quarter: 2011Q3

REPORT INFORMATION
  Report Type: 
  Country: None (occurrence: None)
  Receive Date: 20110718
  Receipt Date: 20110705
  Transmission Date: 20111222
  Serious: Yes (Death)
  Sender: FDA-Public Use
  Company Number: GB-VIIV HEALTHCARE LIMITED-B0733068A

PATIENT

DRUGS (3)
  1. LAMIVUDINE-HIV [Suspect]
     Route: 048
  2. NEVIRAPINE [Suspect]
     Route: 048
  3. ZIDOVUDINE [Suspect]
     Route: 042

REACTIONS (1)
  - NECROTISING ENTEROCOLITIS NEONATAL [None]
